FAERS Safety Report 8124720 (Version 8)
Quarter: 2012Q4

REPORT INFORMATION
  Report Type: 
  Country: GB (occurrence: GB)
  Receive Date: 20110907
  Receipt Date: 20121001
  Transmission Date: 20130627
  Serious: Yes (Hospitalization)
  Sender: FDA-Public Use
  Company Number: PHHO2011GB14828

PATIENT
  Age: 32 Year
  Sex: Female
  Weight: 112.6 kg

DRUGS (6)
  1. FTY [Suspect]
     Indication: MULTIPLE SCLEROSIS
     Dosage: 0.5 mg, QD
     Route: 048
     Dates: start: 20110513, end: 20110902
  2. CARBAMAZEPINE [Concomitant]
     Indication: TRIGEMINAL NEURALGIA
     Dosage: 200 mg, PRN
     Route: 048
     Dates: start: 20080125
  3. CITALOPRAM [Concomitant]
     Indication: DEPRESSION
     Dosage: 20 mg, QD
     Route: 048
     Dates: start: 2009
  4. OXYNORM [Concomitant]
     Indication: MUSCLE SPASMS
     Dosage: 5/10 mg, PRN
     Route: 048
     Dates: start: 20101115, end: 20110830
  5. BACLOFEN [Concomitant]
     Indication: MUSCLE SPASMS
     Dosage: 10 mg, BID
     Route: 048
     Dates: start: 20110514
  6. CO-CODAMOL [Concomitant]
     Indication: MUSCLE SPASMS
     Dosage: 30/500
     Route: 048
     Dates: start: 2005

REACTIONS (4)
  - Pyelonephritis [Recovered/Resolved with Sequelae]
  - Lymphopenia [Recovered/Resolved]
  - Urinary tract infection [Recovered/Resolved]
  - Sinusitis [Recovering/Resolving]
